FAERS Safety Report 9604095 (Version 2)
Quarter: 2014Q1

REPORT INFORMATION
  Report Type: Spontaneous
  Country: GB (occurrence: GB)
  Receive Date: 20131008
  Receipt Date: 20140319
  Transmission Date: 20141002
  Serious: Yes (Death, Other)
  Sender: FDA-Public Use
  Company Number: GB-009507513-1310GBR002768

PATIENT
  Age: 76 Year
  Sex: Female
  Weight: 43 kg

DRUGS (8)
  1. FOSAMAX [Suspect]
     Indication: OSTEOPOROSIS POSTMENOPAUSAL
     Dosage: 70 MG, QW
     Route: 048
  2. ISOSORBIDE MONONITRATE [Concomitant]
     Dosage: 25 MG MANE
  3. ADCAL-D3 [Concomitant]
     Dosage: T BD
  4. DONEPEZIL HYDROCHLORIDE [Concomitant]
     Indication: VASCULAR DEMENTIA
     Dosage: 5 MG NOCTE
  5. LEVOTHYROXINE SODIUM [Concomitant]
     Indication: THYROIDECTOMY
     Dosage: MANE
  6. OMEPRAZOLE [Concomitant]
     Dosage: MANE
  7. ACETAMINOPHEN [Concomitant]
     Dosage: 500MG-1GRAM
  8. ASPIRIN [Suspect]
     Dosage: 75 MG MANE

REACTIONS (4)
  - Death [Fatal]
  - Small intestinal resection [Recovered/Resolved]
  - Laparotomy [Recovered/Resolved]
  - Intestinal perforation [Unknown]
